FAERS Safety Report 12742787 (Version 2)
Quarter: 2016Q4

REPORT INFORMATION
  Report Type: Spontaneous
  Country: CA (occurrence: CA)
  Receive Date: 20160914
  Receipt Date: 20161027
  Transmission Date: 20170207
  Serious: Yes (Other)
  Sender: FDA-Public Use
  Company Number: CA-JNJFOC-20160912393

PATIENT
  Sex: Female

DRUGS (2)
  1. CARDIZEM CD [Suspect]
     Active Substance: DILTIAZEM HYDROCHLORIDE
     Indication: PRODUCT USED FOR UNKNOWN INDICATION
     Route: 065
  2. XARELTO [Suspect]
     Active Substance: RIVAROXABAN
     Indication: PRODUCT USED FOR UNKNOWN INDICATION
     Route: 048

REACTIONS (9)
  - Rectal haemorrhage [Unknown]
  - International normalised ratio increased [Not Recovered/Not Resolved]
  - Drug interaction [Unknown]
  - Coagulopathy [Unknown]
  - FEV1/FVC ratio [Unknown]
  - Contusion [Unknown]
  - Hypotension [Unknown]
  - Oedema peripheral [Unknown]
  - Fall [Unknown]
